FAERS Safety Report 18257210 (Version 2)
Quarter: 2020Q4

REPORT INFORMATION
  Report Type: Report from Study
  Country: CO (occurrence: CO)
  Receive Date: 20200911
  Receipt Date: 20201027
  Transmission Date: 20210113
  Serious: Yes (Death, Hospitalization, Other)
  Sender: FDA-Public Use
  Company Number: CO-ASTELLAS-2020US011988

PATIENT
  Age: 78 Year
  Sex: Male
  Weight: 54 kg

DRUGS (2)
  1. ENZALUTAMIDE [Suspect]
     Active Substance: ENZALUTAMIDE
     Indication: HORMONE-REFRACTORY PROSTATE CANCER
     Route: 048
     Dates: start: 20181017
  2. ENZALUTAMIDE [Suspect]
     Active Substance: ENZALUTAMIDE
     Route: 048

REACTIONS (11)
  - Decubitus ulcer [Recovered/Resolved]
  - Nausea [Recovered/Resolved]
  - Death [Fatal]
  - Aphasia [Recovered/Resolved]
  - Arthralgia [Not Recovered/Not Resolved]
  - Dysphagia [Not Recovered/Not Resolved]
  - Pain in extremity [Not Recovered/Not Resolved]
  - Immobile [Not Recovered/Not Resolved]
  - Loss of consciousness [Recovered/Resolved]
  - Haemorrhage urinary tract [Recovered/Resolved]
  - Vomiting [Recovered/Resolved]

NARRATIVE: CASE EVENT DATE: 20200317
